FAERS Safety Report 6086602-8 (Version None)
Quarter: 2009Q1

REPORT INFORMATION
  Report Type: 
  Country: None (occurrence: None)
  Receive Date: 20090223
  Receipt Date: 20090210
  Transmission Date: 20090719
  Serious: Yes (Other)
  Sender: FDA-Public Use
  Company Number: KR-PFIZER INC-2009168738

PATIENT

DRUGS (1)
  1. VIAGRA [Suspect]
     Route: 048
     Dates: start: 20090101

REACTIONS (1)
  - FACE OEDEMA [None]
